FAERS Safety Report 4315789-X (Version None)
Quarter: 2004Q1

REPORT INFORMATION
  Report Type: 
  Country: None (occurrence: None)
  Receive Date: 20040309
  Receipt Date: 20040225
  Transmission Date: 20041129
  Serious: Yes (Other)
  Sender: FDA-Public Use
  Company Number: USA030537185

PATIENT
  Age: 90 Year
  Sex: Female
  Weight: 52 kg

DRUGS (4)
  1. FORTEO [Suspect]
     Indication: KYPHOSIS
     Dosage: 20 UG/DAY
     Dates: start: 20030101
  2. FORTEO [Suspect]
     Indication: OSTEOPOROSIS
     Dosage: 20 UG/DAY
     Dates: start: 20030101
  3. CALCIUM [Concomitant]
  4. MIACALCIN [Concomitant]

REACTIONS (1)
  - BLOOD CALCIUM INCREASED [None]
